FAERS Safety Report 12199642 (Version 1)
Quarter: 2016Q1

REPORT INFORMATION
  Report Type: Spontaneous
  Country: CH (occurrence: CH)
  Receive Date: 20160322
  Receipt Date: 20160322
  Transmission Date: 20160526
  Serious: Yes (Life-Threatening, Hospitalization)
  Sender: FDA-Public Use
  Company Number: CH-PFIZER INC-2016159425

PATIENT
  Age: 54 Year
  Sex: Female

DRUGS (20)
  1. NEXIUM [Suspect]
     Active Substance: ESOMEPRAZOLE MAGNESIUM
     Dosage: UNK
     Dates: end: 20150713
  2. EUTHYROX [Concomitant]
     Active Substance: LEVOTHYROXINE SODIUM
  3. NALTREXIN [Concomitant]
  4. VI DE3 [Concomitant]
  5. LAXOBERON [Concomitant]
     Active Substance: SODIUM PICOSULFATE
  6. XIFAXAN [Concomitant]
     Active Substance: RIFAXIMIN
  7. ATARAX [Concomitant]
     Active Substance: HYDROXYZINE\HYDROXYZINE HYDROCHLORIDE
  8. ALBUMIN [Concomitant]
     Active Substance: ALBUMIN (HUMAN)
  9. DIGOXIN. [Suspect]
     Active Substance: DIGOXIN
     Dosage: UNK
     Dates: end: 20150713
  10. KONAKION [Concomitant]
     Active Substance: PHYTONADIONE
  11. PANTOPRAZOLE [Suspect]
     Active Substance: PANTOPRAZOLE SODIUM
  12. NORFLOCIN [Suspect]
     Active Substance: NORFLOXACIN
     Dosage: UNK
     Dates: end: 20150713
  13. PANTOGAR /00630501/ [Concomitant]
  14. QUANTALAN [Concomitant]
     Active Substance: CHOLESTYRAMINE
  15. FRESUBIN [Concomitant]
     Active Substance: AMINO ACIDS\DEXTROSE\ELECTROLYTES NOS\SOYBEAN OIL\VITAMINS
  16. DE-URSIL RR [Concomitant]
  17. MOVICOL [Concomitant]
     Active Substance: POLYETHYLENE GLYCOL 3350\POTASSIUM CHLORIDE\SODIUM BICARBONATE\SODIUM CHLORIDE
  18. HEPA MERZ [Concomitant]
  19. ALDACTONE [Suspect]
     Active Substance: SPIRONOLACTONE
     Dosage: UNK
     Dates: end: 20150713
  20. DUPHALAC [Concomitant]
     Active Substance: LACTULOSE

REACTIONS (1)
  - Bone marrow failure [Recovered/Resolved]

NARRATIVE: CASE EVENT DATE: 20150709
